FAERS Safety Report 9399883 (Version 3)
Quarter: 2013Q4

REPORT INFORMATION
  Report Type: Spontaneous
  Country: GB (occurrence: None)
  Receive Date: 20130710
  Receipt Date: 20131127
  Transmission Date: 20140711
  Serious: Yes (Other)
  Sender: FDA-Public Use
  Company Number: AUR-APL-2013-05674

PATIENT
  Age: 52 Year
  Sex: Female
  Weight: 180 kg

DRUGS (2)
  1. SIMVASTATIN [Suspect]
     Indication: BLOOD CHOLESTEROL INCREASED
     Route: 048
     Dates: end: 201210
  2. DUOTRAV OPHTHALMIC SOLUTION (DUO-TRAVATAN) [Concomitant]

REACTIONS (16)
  - Arthralgia [None]
  - Myalgia [None]
  - Muscular weakness [None]
  - Muscular weakness [None]
  - Dizziness [None]
  - Hypoaesthesia [None]
  - Yellow skin [None]
  - Migraine [None]
  - Nausea [None]
  - Palpitations [None]
  - Pain in jaw [None]
  - Amnesia [None]
  - Feeling of body temperature change [None]
  - Hypoaesthesia [None]
  - Hypoaesthesia [None]
  - Cerebrovascular accident [None]
